FAERS Safety Report 8923106 (Version 1)
Quarter: 2012Q4

REPORT INFORMATION
  Report Type: 
  Country: US (occurrence: US)
  Receive Date: 20121123
  Receipt Date: 20121123
  Transmission Date: 20130627
  Serious: Yes (Hospitalization, Disabling, Other)
  Sender: FDA-Public Use
  Company Number: US-PFIZER INC-2005075840

PATIENT
  Age: 35 Year
  Sex: Male

DRUGS (25)
  1. IBUPROFEN [Suspect]
     Indication: PAIN
     Route: 048
  2. LITHIUM CARBONATE [Interacting]
     Indication: BIPOLAR DISORDER
     Dosage: 2200 mg, daily
     Route: 048
  3. BEXTRA [Interacting]
     Indication: ARTHRITIS
     Route: 048
     Dates: start: 200301
  4. VIOXX [Suspect]
     Indication: ILL-DEFINED DISORDER
     Route: 048
     Dates: end: 200301
  5. PHAZYME [Suspect]
     Indication: GAS
     Route: 048
     Dates: start: 2000
  6. MULTIVITAMINS [Concomitant]
     Route: 065
  7. ASCORBIC ACID [Concomitant]
     Route: 065
  8. ACIDOPHILUS [Concomitant]
     Route: 065
  9. GARLIC [Concomitant]
     Route: 065
  10. VITAMIN E [Concomitant]
     Route: 065
  11. NEURONTIN [Concomitant]
     Route: 065
  12. CELEBREX [Concomitant]
     Route: 065
  13. PRILOSEC [Concomitant]
     Route: 065
  14. CLARITIN [Concomitant]
     Route: 065
  15. IMITREX [Concomitant]
     Route: 065
  16. BUSPAR [Concomitant]
     Route: 065
  17. COLACE [Concomitant]
     Route: 065
  18. EFFEXOR [Concomitant]
     Route: 065
  19. PULMICORT [Concomitant]
     Route: 065
  20. ALBUTEROL [Concomitant]
     Route: 065
  21. SEREVENT [Concomitant]
     Route: 065
  22. ATROVENT [Concomitant]
     Route: 065
  23. ASPIRIN [Concomitant]
     Route: 065
     Dates: start: 1990
  24. SINGULAIR [Concomitant]
     Route: 065
  25. ALL OTHER THERAPEUTIC PRODUCTS [Concomitant]
     Route: 065

REACTIONS (12)
  - Cerebrovascular accident [Recovered/Resolved with Sequelae]
  - Hemiplegia [Not Recovered/Not Resolved]
  - Gait disturbance [Not Recovered/Not Resolved]
  - Activities of daily living impaired [Unknown]
  - Amnesia [Not Recovered/Not Resolved]
  - Coma [Recovered/Resolved]
  - Renal failure [Recovered/Resolved]
  - Hallucination [Recovered/Resolved]
  - Speech disorder [Recovered/Resolved]
  - Drug interaction [Unknown]
  - Influenza [Recovered/Resolved]
  - Malaise [Recovered/Resolved]
